FAERS Safety Report 17926034 (Version 1)
Quarter: 2020Q2

REPORT INFORMATION
  Report Type: Spontaneous
  Country: US (occurrence: US)
  Receive Date: 20200622
  Receipt Date: 20200622
  Transmission Date: 20200714
  Serious: Yes (Other)
  Sender: FDA-Public Use
  Company Number: US-TEVA-2020-US-1788210

PATIENT
  Sex: Male

DRUGS (5)
  1. FENTANYL. [Suspect]
     Active Substance: FENTANYL
     Indication: PRODUCT USED FOR UNKNOWN INDICATION
     Route: 065
  2. MORPHINE IR [Suspect]
     Active Substance: MORPHINE
     Route: 065
  3. MS CONTIN [Suspect]
     Active Substance: MORPHINE SULFATE
     Route: 065
  4. PERCOCET [Suspect]
     Active Substance: ACETAMINOPHEN\OXYCODONE HYDROCHLORIDE
     Route: 065
  5. BACTRIM [Suspect]
     Active Substance: SULFAMETHOXAZOLE\TRIMETHOPRIM
     Route: 065

REACTIONS (15)
  - Constipation [Unknown]
  - Marital problem [Unknown]
  - Product dose omission [Unknown]
  - Depression [Unknown]
  - Dissociation [Unknown]
  - Swollen tongue [Unknown]
  - Feeling jittery [Unknown]
  - Tongue blistering [Unknown]
  - Feeling abnormal [Unknown]
  - Somnolence [Unknown]
  - Dizziness postural [Unknown]
  - Irritability [Unknown]
  - Drug dependence [Unknown]
  - Bedridden [Unknown]
  - Loss of personal independence in daily activities [Unknown]
